FAERS Safety Report 5035076-4 (Version None)
Quarter: 2006Q2

REPORT INFORMATION
  Report Type: 
  Country: None (occurrence: None)
  Receive Date: 20060627
  Receipt Date: 20060613
  Transmission Date: 20061013
  Serious: Yes (Other)
  Sender: FDA-Public Use
  Company Number: PHEH2006US07787

PATIENT

DRUGS (2)
  1. ZELNORM [Suspect]
     Dosage: 50 TABLETS
     Route: 048
  2. HERBAL PREPARATION [Suspect]

REACTIONS (1)
  - OVERDOSE [None]
